FAERS Safety Report 5525157-0 (Version None)
Quarter: 2007Q4

REPORT INFORMATION
  Report Type: 
  Country: None (occurrence: None)
  Receive Date: 20071119
  Receipt Date: 20071105
  Transmission Date: 20080405
  Serious: Yes (Other)
  Sender: FDA-Public Use
  Company Number: CERZ-11987

PATIENT
  Age: 15 Year
  Sex: 0
  Weight: 40 kg

DRUGS (1)
  1. CEREZYME [Suspect]
     Indication: GAUCHER'S DISEASE
     Dosage: 60 U/KG IV
     Route: 042

REACTIONS (4)
  - ASCITES [None]
  - CONDITION AGGRAVATED [None]
  - GENERALISED OEDEMA [None]
  - PLEURAL EFFUSION [None]
